FAERS Safety Report 4997750-5 (Version None)
Quarter: 2006Q2

REPORT INFORMATION
  Report Type: 
  Country: None (occurrence: None)
  Receive Date: 20060505
  Receipt Date: 20060426
  Transmission Date: 20061013
  Serious: Yes (Congenital Anomaly)
  Sender: FDA-Public Use
  Company Number: 2006-04-1315

PATIENT
  Age: 23 Year
  Sex: Female

DRUGS (5)
  1. PEG-INTRON [Suspect]
     Indication: HEPATITIS C
     Dosage: SUBCUTANEOUS
     Route: 058
     Dates: end: 20051115
  2. REBETOL [Suspect]
     Indication: HEPATITIS C
     Dosage: 1000 MG QD ORAL
     Route: 048
     Dates: end: 20051115
  3. ZOLOFT [Concomitant]
  4. TYLENOL (GELTAB) [Concomitant]
  5. PRENATAL VITAMINS [Concomitant]

REACTIONS (2)
  - CYSTIC LYMPHANGIOMA [None]
  - DRUG EXPOSURE BEFORE PREGNANCY [None]
